FAERS Safety Report 9346801 (Version 1)
Quarter: 2013Q2

REPORT INFORMATION
  Report Type: Spontaneous
  Country: BR (occurrence: BR)
  Receive Date: 20130613
  Receipt Date: 20130613
  Transmission Date: 20140414
  Serious: Yes (Hospitalization)
  Sender: FDA-Public Use
  Company Number: BR-ASTRAZENECA-2013SE41659

PATIENT
  Age: 1014 Month
  Sex: Male
  Weight: 76 kg

DRUGS (4)
  1. SELOZOK [Suspect]
     Route: 048
     Dates: start: 201304
  2. CRESTOR [Suspect]
     Indication: HIGH DENSITY LIPOPROTEIN INCREASED
     Route: 048
     Dates: start: 201304
  3. ACETYLSALICYLIC ACID [Concomitant]
     Dates: start: 201303
  4. SUSTRATE [Concomitant]
     Indication: ANGINA PECTORIS
     Dates: start: 201303

REACTIONS (1)
  - Coronary artery occlusion [Recovered/Resolved]
